FAERS Safety Report 20543297 (Version 1)
Quarter: 2022Q1

REPORT INFORMATION
  Report Type: Spontaneous
  Country: US (occurrence: US)
  Receive Date: 20220302
  Receipt Date: 20220302
  Transmission Date: 20220423
  Serious: Yes (Other)
  Sender: FDA-Public Use
  Company Number: US-Teikoku Pharma USA-TPU2022-00154

PATIENT
  Age: 41 Year
  Sex: Female
  Weight: 118.04 kg

DRUGS (6)
  1. LIDODERM [Suspect]
     Active Substance: LIDOCAINE
     Indication: Fibromyalgia
     Route: 061
     Dates: end: 201605
  2. LIDODERM [Suspect]
     Active Substance: LIDOCAINE
     Indication: Arthritis
  3. LIDODERM [Suspect]
     Active Substance: LIDOCAINE
     Indication: Accident
  4. LIDOCAINE PATCH [Suspect]
     Active Substance: LIDOCAINE
     Indication: Fibromyalgia
     Dosage: IN A NORMAL WEEK PATIENT USES 2 PATCHES BUT SHE SAYS WITH EXTREME COLD OR WARM SHE MAY USE MORE
     Route: 061
     Dates: end: 201605
  5. LIDOCAINE PATCH [Suspect]
     Active Substance: LIDOCAINE
     Indication: Arthritis
  6. LIDOCAINE PATCH [Suspect]
     Active Substance: LIDOCAINE
     Indication: Accident

REACTIONS (4)
  - Cerebrovascular accident [Unknown]
  - Hemiparesis [Not Recovered/Not Resolved]
  - Insurance issue [Unknown]
  - Wrong technique in product usage process [Unknown]

NARRATIVE: CASE EVENT DATE: 20151014
